FAERS Safety Report 23500473 (Version 1)
Quarter: 2024Q1

REPORT INFORMATION
  Report Type: Other
  Country: GB (occurrence: None)
  Receive Date: 20240208
  Receipt Date: 20240208
  Transmission Date: 20240410
  Serious: Yes (Other)
  Sender: FDA-Public Use
  Company Number: GB-ROCHE-3160390

PATIENT
  Sex: Male

DRUGS (1)
  1. EVRYSDI [Suspect]
     Active Substance: RISDIPLAM
     Indication: Product used for unknown indication
     Dosage: POWDER FOR SOLUTION STRENGTH: 0.75MG/ML DOSE: 5MG (6.6ML ONCE DAILY)
     Route: 065
     Dates: start: 20220304

REACTIONS (4)
  - Spinal disorder [Unknown]
  - Illness [Unknown]
  - SARS-CoV-2 test positive [Unknown]
  - Illness [Unknown]
